FAERS Safety Report 8366046-6 (Version None)
Quarter: 2012Q2

REPORT INFORMATION
  Report Type: 
  Country: None (occurrence: None)
  Receive Date: 20120516
  Receipt Date: 20120516
  Transmission Date: 20120825
  Serious: Yes (Other)
  Sender: FDA-Public Use
  Company Number: None

PATIENT
  Sex: Female
  Weight: 113.3993 kg

DRUGS (2)
  1. GABAPENTIN [Suspect]
     Indication: NEUROPATHY PERIPHERAL
     Dosage: 1 CAPSULE 2X A DAY ORAL
     Route: 048
     Dates: start: 20110423
  2. GABAPENTIN [Suspect]
     Indication: NEUROPATHY PERIPHERAL
     Dosage: 1 CAPSULE 2X A DAY ORAL
     Route: 048
     Dates: start: 20120323

REACTIONS (1)
  - OEDEMA PERIPHERAL [None]
